FAERS Safety Report 18331791 (Version 1)
Quarter: 2020Q3

REPORT INFORMATION
  Report Type: Spontaneous
  Country: CN (occurrence: CN)
  Receive Date: 20200930
  Receipt Date: 20200930
  Transmission Date: 20201103
  Serious: Yes (Death)
  Sender: FDA-Public Use
  Company Number: CN-DOVA PHARMACEUTICALS INC.-DOV-000661

PATIENT

DRUGS (5)
  1. POLYENE PHOSPHATIDYLCHOLINE [Concomitant]
     Active Substance: PHOSPHOLIPID
     Indication: PRODUCT USED FOR UNKNOWN INDICATION
  2. SUKEXIN [Suspect]
     Active Substance: AVATROMBOPAG
     Indication: HEPATIC CIRRHOSIS
     Dosage: 60 MG, QD
     Route: 048
     Dates: start: 20200916, end: 20200918
  3. ENTECAVIR SANDOZ [Concomitant]
     Indication: PRODUCT USED FOR UNKNOWN INDICATION
  4. DIAMMONIUM GLYCYRRHIZINATE [Concomitant]
     Active Substance: HERBALS\DIAMMONIUM GLYCYRRHIZINATE
     Indication: PRODUCT USED FOR UNKNOWN INDICATION
  5. ADEMETIONINE 1,4?BUTANEDISULFONATE [Concomitant]
     Active Substance: ADEMETIONINE BUTANEDISULFONATE
     Indication: PRODUCT USED FOR UNKNOWN INDICATION

REACTIONS (3)
  - Lethargy [Fatal]
  - Haematuria [Fatal]
  - Fatigue [Fatal]

NARRATIVE: CASE EVENT DATE: 20200917
